FAERS Safety Report 5764465-5 (Version None)
Quarter: 2008Q2

REPORT INFORMATION
  Report Type: 
  Country: None (occurrence: None)
  Receive Date: 20080610
  Receipt Date: 20080602
  Transmission Date: 20081010
  Serious: Yes (Hospitalization)
  Sender: FDA-Public Use
  Company Number: PL-PFIZER INC-2008046813

PATIENT
  Sex: Male
  Weight: 76 kg

DRUGS (1)
  1. SOLU-MEDROL [Suspect]
     Dosage: DAILY DOSE:1GRAM
     Route: 042
     Dates: start: 20080417, end: 20080417

REACTIONS (2)
  - PRURITUS [None]
  - RASH [None]
